FAERS Safety Report 7291342-3 (Version None)
Quarter: 2011Q1

REPORT INFORMATION
  Report Type: 
  Country: None (occurrence: None)
  Receive Date: 20110214
  Receipt Date: 20110207
  Transmission Date: 20110831
  Serious: Yes (Death)
  Sender: FDA-Public Use
  Company Number: A0905968A

PATIENT
  Age: 52 Year
  Sex: Male

DRUGS (6)
  1. TENSILON [Concomitant]
  2. VOTRIENT [Suspect]
     Dosage: 800MG PER DAY
     Route: 048
  3. CYCLOSPORINE [Concomitant]
     Route: 048
  4. VITAMIN A [Concomitant]
     Route: 048
  5. VITAMIN D [Concomitant]
     Route: 048
  6. PREDNISONE [Concomitant]
     Route: 048

REACTIONS (2)
  - DEATH [None]
  - NEOPLASM MALIGNANT [None]
